FAERS Safety Report 10252849 (Version 1)
Quarter: 2014Q2

REPORT INFORMATION
  Report Type: Spontaneous
  Country: JP (occurrence: JP)
  Receive Date: 20140623
  Receipt Date: 20140623
  Transmission Date: 20141212
  Serious: Yes (Hospitalization)
  Sender: FDA-Public Use
  Company Number: PHHY2014JP076483

PATIENT
  Age: 10 Year
  Sex: Female

DRUGS (5)
  1. VIRUHEXAL [Suspect]
     Indication: INFECTION PROPHYLAXIS
     Dosage: 40 MG/KG, BID
  2. CICLOSPORIN [Suspect]
     Indication: FOCAL SEGMENTAL GLOMERULOSCLEROSIS
  3. ANGIOTENSIN II ANTAGONISTS [Suspect]
  4. PREDNISOLONE [Concomitant]
     Indication: FOCAL SEGMENTAL GLOMERULOSCLEROSIS
  5. MYCOPHENOLATE MOFETIL [Concomitant]
     Indication: FOCAL SEGMENTAL GLOMERULOSCLEROSIS

REACTIONS (6)
  - Renal disorder [Unknown]
  - Anuria [Unknown]
  - Fluid retention [Unknown]
  - Renal tubular necrosis [Unknown]
  - Renal tubular atrophy [Unknown]
  - Weight increased [Unknown]
